FAERS Safety Report 7371405-4 (Version None)
Quarter: 2011Q1

REPORT INFORMATION
  Report Type: 
  Country: None (occurrence: None)
  Receive Date: 20110324
  Receipt Date: 20110118
  Transmission Date: 20110831
  Serious: Yes (Disabling)
  Sender: FDA-Public Use
  Company Number: BR-BAYER-200920585LA

PATIENT
  Sex: Female

DRUGS (6)
  1. IBUPROFENO [Concomitant]
     Indication: PREMEDICATION
     Dosage: 2 TABLETS PER DAY
     Route: 048
     Dates: start: 20090701
  2. BACLOFEN [Concomitant]
     Indication: MUSCLE SPASMS
     Dosage: 1 DF, Q4HR
     Route: 048
     Dates: start: 20020101
  3. BACLOFEN [Concomitant]
     Indication: MUSCULAR WEAKNESS
  4. BETAFERON [Suspect]
     Indication: MULTIPLE SCLEROSIS
     Dosage: BETAJECT
     Route: 058
     Dates: start: 20080101
  5. BACLOFEN [Concomitant]
  6. RETEMIC [Concomitant]
     Indication: MULTIPLE SCLEROSIS
     Route: 048
     Dates: start: 20040101

REACTIONS (12)
  - BEDRIDDEN [None]
  - URINARY INCONTINENCE [None]
  - MEMORY IMPAIRMENT [None]
  - MULTIPLE SCLEROSIS [None]
  - MULTIPLE SCLEROSIS RELAPSE [None]
  - ANAEMIA [None]
  - SPEECH DISORDER [None]
  - ABASIA [None]
  - ASTHENIA [None]
  - URINARY TRACT INFECTION [None]
  - MUSCULOSKELETAL STIFFNESS [None]
  - GAIT DISTURBANCE [None]
